FAERS Safety Report 18673425 (Version 1)
Quarter: 2020Q4

REPORT INFORMATION
  Report Type: Spontaneous
  Country: US (occurrence: US)
  Receive Date: 20201229
  Receipt Date: 20201229
  Transmission Date: 20210114
  Serious: No
  Sender: FDA-Public Use
  Company Number: US-AUROBINDO-AUR-APL-2020-040470

PATIENT
  Sex: Female

DRUGS (1)
  1. AMOXICILLIN TABLETS USP 875 MG [Suspect]
     Active Substance: AMOXICILLIN
     Indication: INFECTION
     Dosage: UNK
     Route: 065

REACTIONS (3)
  - Illness [Unknown]
  - Product expiration date issue [Unknown]
  - Product odour abnormal [Unknown]
